FAERS Safety Report 12254470 (Version 1)
Quarter: 2016Q2

REPORT INFORMATION
  Report Type: Other
  Country: GB (occurrence: GB)
  Receive Date: 20160411
  Receipt Date: 20160411
  Transmission Date: 20160815
  Serious: Yes (Other)
  Sender: FDA-Public Use
  Company Number: GB-MYLANLABS-2016M1014458

PATIENT

DRUGS (1)
  1. DOXYCYCLINE. [Suspect]
     Active Substance: DOXYCYCLINE
     Dosage: 100 MG, UNK
     Route: 065

REACTIONS (6)
  - Musculoskeletal stiffness [Unknown]
  - Somnolence [Unknown]
  - Intracranial pressure increased [Unknown]
  - Headache [Unknown]
  - Confusional state [Unknown]
  - Asthenia [Unknown]
